FAERS Safety Report 9775882 (Version 1)
Quarter: 2013Q4

REPORT INFORMATION
  Report Type: Spontaneous
  Country: BR (occurrence: None)
  Receive Date: 20131219
  Receipt Date: 20131219
  Transmission Date: 20140711
  Serious: Yes (Other)
  Sender: FDA-Public Use
  Company Number: AE-FAC-2013-007

PATIENT
  Age: 47 Year
  Sex: Female

DRUGS (2)
  1. FACTIVE [Suspect]
     Indication: SINUSITIS
     Route: 048
     Dates: start: 20131003, end: 20131012
  2. SYNTHROID [Concomitant]

REACTIONS (2)
  - Hypersensitivity [None]
  - Incorrect drug administration duration [None]
